FAERS Safety Report 26104033 (Version 1)
Quarter: 2025Q4

REPORT INFORMATION
  Report Type: Spontaneous
  Country: US (occurrence: US)
  Receive Date: 20251129
  Receipt Date: 20251129
  Transmission Date: 20260119
  Serious: No
  Sender: ELI LILLY AND COMPANY
  Company Number: US-ELI_LILLY_AND_COMPANY-US202511032063

PATIENT
  Age: 61 Year
  Sex: Male

DRUGS (2)
  1. VERZENIO [Interacting]
     Active Substance: ABEMACICLIB
     Indication: Meningioma malignant
     Dosage: 200 MG, BID
     Route: 048
  2. MODAFINIL [Interacting]
     Active Substance: MODAFINIL
     Indication: Product used for unknown indication
     Dosage: UNK UNK, UNKNOWN
     Route: 065

REACTIONS (2)
  - Drug interaction [Unknown]
  - Off label use [Unknown]
